FAERS Safety Report 25146679 (Version 1)
Quarter: 2025Q2

REPORT INFORMATION
  Report Type: Spontaneous
  Country: CA (occurrence: CA)
  Receive Date: 20250401
  Receipt Date: 20250401
  Transmission Date: 20250716
  Serious: Yes (Hospitalization, Other)
  Sender: MYLAN
  Company Number: CA-MYLANLABS-2022M1147025

PATIENT
  Age: 36 Year
  Sex: Female

DRUGS (148)
  1. EPINEPHRINE [Suspect]
     Active Substance: EPINEPHRINE
     Indication: Product used for unknown indication
  2. EPINEPHRINE [Suspect]
     Active Substance: EPINEPHRINE
     Route: 008
  3. EPINEPHRINE [Suspect]
     Active Substance: EPINEPHRINE
     Route: 008
  4. EPINEPHRINE [Suspect]
     Active Substance: EPINEPHRINE
  5. EPINEPHRINE [Suspect]
     Active Substance: EPINEPHRINE
     Indication: Product used for unknown indication
  6. EPINEPHRINE [Suspect]
     Active Substance: EPINEPHRINE
     Route: 065
  7. EPINEPHRINE [Suspect]
     Active Substance: EPINEPHRINE
     Route: 065
  8. EPINEPHRINE [Suspect]
     Active Substance: EPINEPHRINE
  9. EPINEPHRINE [Suspect]
     Active Substance: EPINEPHRINE
     Indication: Product used for unknown indication
  10. EPINEPHRINE [Suspect]
     Active Substance: EPINEPHRINE
     Route: 065
  11. EPINEPHRINE [Suspect]
     Active Substance: EPINEPHRINE
     Route: 065
  12. EPINEPHRINE [Suspect]
     Active Substance: EPINEPHRINE
  13. MORPHINE [Suspect]
     Active Substance: MORPHINE
     Indication: Product used for unknown indication
  14. MORPHINE [Suspect]
     Active Substance: MORPHINE
     Route: 065
  15. MORPHINE [Suspect]
     Active Substance: MORPHINE
     Route: 065
  16. MORPHINE [Suspect]
     Active Substance: MORPHINE
  17. LANSOPRAZOLE [Suspect]
     Active Substance: LANSOPRAZOLE
     Indication: Product used for unknown indication
  18. LANSOPRAZOLE [Suspect]
     Active Substance: LANSOPRAZOLE
     Route: 065
  19. LANSOPRAZOLE [Suspect]
     Active Substance: LANSOPRAZOLE
     Route: 065
  20. LANSOPRAZOLE [Suspect]
     Active Substance: LANSOPRAZOLE
  21. CARBETOCIN [Suspect]
     Active Substance: CARBETOCIN
     Indication: Product used for unknown indication
     Route: 065
  22. CARBETOCIN [Suspect]
     Active Substance: CARBETOCIN
  23. CARBETOCIN [Suspect]
     Active Substance: CARBETOCIN
  24. CARBETOCIN [Suspect]
     Active Substance: CARBETOCIN
     Route: 065
  25. CARBETOCIN [Suspect]
     Active Substance: CARBETOCIN
     Route: 065
  26. CARBETOCIN [Suspect]
     Active Substance: CARBETOCIN
  27. CARBETOCIN [Suspect]
     Active Substance: CARBETOCIN
  28. CARBETOCIN [Suspect]
     Active Substance: CARBETOCIN
     Route: 065
  29. ASPIRIN [Suspect]
     Active Substance: ASPIRIN
     Indication: Product used for unknown indication
  30. ASPIRIN [Suspect]
     Active Substance: ASPIRIN
     Route: 065
  31. ASPIRIN [Suspect]
     Active Substance: ASPIRIN
     Route: 065
  32. ASPIRIN [Suspect]
     Active Substance: ASPIRIN
  33. AZATHIOPRINE [Suspect]
     Active Substance: AZATHIOPRINE
     Indication: Product used for unknown indication
  34. AZATHIOPRINE [Suspect]
     Active Substance: AZATHIOPRINE
     Route: 065
  35. AZATHIOPRINE [Suspect]
     Active Substance: AZATHIOPRINE
     Route: 065
  36. AZATHIOPRINE [Suspect]
     Active Substance: AZATHIOPRINE
  37. BUPIVACAINE HYDROCHLORIDE [Suspect]
     Active Substance: BUPIVACAINE HYDROCHLORIDE
     Indication: Epidural anaesthesia
  38. BUPIVACAINE HYDROCHLORIDE [Suspect]
     Active Substance: BUPIVACAINE HYDROCHLORIDE
     Indication: Anaesthesia
  39. BUPIVACAINE HYDROCHLORIDE [Suspect]
     Active Substance: BUPIVACAINE HYDROCHLORIDE
     Indication: Induction of anaesthesia
     Route: 065
  40. BUPIVACAINE HYDROCHLORIDE [Suspect]
     Active Substance: BUPIVACAINE HYDROCHLORIDE
     Route: 065
  41. BUPIVACAINE HYDROCHLORIDE [Suspect]
     Active Substance: BUPIVACAINE HYDROCHLORIDE
  42. BUPIVACAINE HYDROCHLORIDE [Suspect]
     Active Substance: BUPIVACAINE HYDROCHLORIDE
  43. BUPIVACAINE HYDROCHLORIDE [Suspect]
     Active Substance: BUPIVACAINE HYDROCHLORIDE
     Route: 037
  44. BUPIVACAINE HYDROCHLORIDE [Suspect]
     Active Substance: BUPIVACAINE HYDROCHLORIDE
     Route: 037
  45. CALCIUM CHLORIDE\POTASSIUM CHLORIDE\SODIUM CHLORIDE\SODIUM LACTATE [Suspect]
     Active Substance: CALCIUM CHLORIDE\POTASSIUM CHLORIDE\SODIUM CHLORIDE\SODIUM LACTATE
     Indication: Product used for unknown indication
  46. CALCIUM CHLORIDE\POTASSIUM CHLORIDE\SODIUM CHLORIDE\SODIUM LACTATE [Suspect]
     Active Substance: CALCIUM CHLORIDE\POTASSIUM CHLORIDE\SODIUM CHLORIDE\SODIUM LACTATE
     Route: 065
  47. CALCIUM CHLORIDE\POTASSIUM CHLORIDE\SODIUM CHLORIDE\SODIUM LACTATE [Suspect]
     Active Substance: CALCIUM CHLORIDE\POTASSIUM CHLORIDE\SODIUM CHLORIDE\SODIUM LACTATE
     Route: 065
  48. CALCIUM CHLORIDE\POTASSIUM CHLORIDE\SODIUM CHLORIDE\SODIUM LACTATE [Suspect]
     Active Substance: CALCIUM CHLORIDE\POTASSIUM CHLORIDE\SODIUM CHLORIDE\SODIUM LACTATE
  49. ESCITALOPRAM [Suspect]
     Active Substance: ESCITALOPRAM OXALATE
     Indication: Product used for unknown indication
  50. ESCITALOPRAM [Suspect]
     Active Substance: ESCITALOPRAM OXALATE
     Route: 065
  51. ESCITALOPRAM [Suspect]
     Active Substance: ESCITALOPRAM OXALATE
     Route: 065
  52. ESCITALOPRAM [Suspect]
     Active Substance: ESCITALOPRAM OXALATE
  53. FENTANYL CITRATE [Suspect]
     Active Substance: FENTANYL CITRATE
     Indication: Epidural anaesthesia
  54. FENTANYL CITRATE [Suspect]
     Active Substance: FENTANYL CITRATE
     Indication: Anaesthesia
  55. FENTANYL CITRATE [Suspect]
     Active Substance: FENTANYL CITRATE
     Indication: Induction of anaesthesia
     Route: 037
  56. FENTANYL CITRATE [Suspect]
     Active Substance: FENTANYL CITRATE
     Route: 037
  57. FENTANYL CITRATE [Suspect]
     Active Substance: FENTANYL CITRATE
  58. FENTANYL CITRATE [Suspect]
     Active Substance: FENTANYL CITRATE
  59. FENTANYL CITRATE [Suspect]
     Active Substance: FENTANYL CITRATE
     Route: 037
  60. FENTANYL CITRATE [Suspect]
     Active Substance: FENTANYL CITRATE
     Route: 037
  61. LIDOCAINE [Suspect]
     Active Substance: LIDOCAINE
     Indication: Product used for unknown indication
  62. LIDOCAINE [Suspect]
     Active Substance: LIDOCAINE
     Route: 008
  63. LIDOCAINE [Suspect]
     Active Substance: LIDOCAINE
     Route: 008
  64. LIDOCAINE [Suspect]
     Active Substance: LIDOCAINE
  65. METHYLDOPA [Suspect]
     Active Substance: METHYLDOPA
     Indication: Product used for unknown indication
  66. METHYLDOPA [Suspect]
     Active Substance: METHYLDOPA
     Route: 065
  67. METHYLDOPA [Suspect]
     Active Substance: METHYLDOPA
     Route: 065
  68. METHYLDOPA [Suspect]
     Active Substance: METHYLDOPA
  69. PHENYLEPHRINE HYDROCHLORIDE [Suspect]
     Active Substance: PHENYLEPHRINE HYDROCHLORIDE
     Indication: Product used for unknown indication
  70. PHENYLEPHRINE HYDROCHLORIDE [Suspect]
     Active Substance: PHENYLEPHRINE HYDROCHLORIDE
     Route: 042
  71. PHENYLEPHRINE HYDROCHLORIDE [Suspect]
     Active Substance: PHENYLEPHRINE HYDROCHLORIDE
     Route: 042
  72. PHENYLEPHRINE HYDROCHLORIDE [Suspect]
     Active Substance: PHENYLEPHRINE HYDROCHLORIDE
  73. ALBUTEROL [Suspect]
     Active Substance: ALBUTEROL
     Indication: Product used for unknown indication
  74. ALBUTEROL [Suspect]
     Active Substance: ALBUTEROL
     Route: 065
  75. ALBUTEROL [Suspect]
     Active Substance: ALBUTEROL
     Route: 065
  76. ALBUTEROL [Suspect]
     Active Substance: ALBUTEROL
  77. TACROLIMUS [Suspect]
     Active Substance: TACROLIMUS
     Indication: Product used for unknown indication
  78. TACROLIMUS [Suspect]
     Active Substance: TACROLIMUS
     Route: 065
  79. TACROLIMUS [Suspect]
     Active Substance: TACROLIMUS
     Route: 065
  80. TACROLIMUS [Suspect]
     Active Substance: TACROLIMUS
  81. TINZAPARIN [Suspect]
     Active Substance: TINZAPARIN
     Indication: Product used for unknown indication
  82. TINZAPARIN [Suspect]
     Active Substance: TINZAPARIN
     Route: 065
  83. TINZAPARIN [Suspect]
     Active Substance: TINZAPARIN
     Route: 065
  84. TINZAPARIN [Suspect]
     Active Substance: TINZAPARIN
  85. ESCITALOPRAM OXALATE [Suspect]
     Active Substance: ESCITALOPRAM OXALATE
     Indication: Product used for unknown indication
  86. ESCITALOPRAM OXALATE [Suspect]
     Active Substance: ESCITALOPRAM OXALATE
     Route: 065
  87. ESCITALOPRAM OXALATE [Suspect]
     Active Substance: ESCITALOPRAM OXALATE
     Route: 065
  88. ESCITALOPRAM OXALATE [Suspect]
     Active Substance: ESCITALOPRAM OXALATE
  89. LANSOPRAZOLE [Suspect]
     Active Substance: LANSOPRAZOLE
     Indication: Product used for unknown indication
  90. LANSOPRAZOLE [Suspect]
     Active Substance: LANSOPRAZOLE
     Route: 065
  91. LANSOPRAZOLE [Suspect]
     Active Substance: LANSOPRAZOLE
     Route: 065
  92. LANSOPRAZOLE [Suspect]
     Active Substance: LANSOPRAZOLE
  93. MORPHINE HYDROCHLORIDE [Suspect]
     Active Substance: MORPHINE HYDROCHLORIDE
     Indication: Product used for unknown indication
  94. MORPHINE HYDROCHLORIDE [Suspect]
     Active Substance: MORPHINE HYDROCHLORIDE
     Route: 065
  95. MORPHINE HYDROCHLORIDE [Suspect]
     Active Substance: MORPHINE HYDROCHLORIDE
     Route: 065
  96. MORPHINE HYDROCHLORIDE [Suspect]
     Active Substance: MORPHINE HYDROCHLORIDE
  97. ALBUTEROL SULFATE [Suspect]
     Active Substance: ALBUTEROL SULFATE
     Indication: Product used for unknown indication
  98. ALBUTEROL SULFATE [Suspect]
     Active Substance: ALBUTEROL SULFATE
     Route: 065
  99. ALBUTEROL SULFATE [Suspect]
     Active Substance: ALBUTEROL SULFATE
     Route: 065
  100. ALBUTEROL SULFATE [Suspect]
     Active Substance: ALBUTEROL SULFATE
  101. TINZAPARIN SODIUM [Suspect]
     Active Substance: TINZAPARIN SODIUM
     Indication: Product used for unknown indication
  102. TINZAPARIN SODIUM [Suspect]
     Active Substance: TINZAPARIN SODIUM
     Route: 065
  103. TINZAPARIN SODIUM [Suspect]
     Active Substance: TINZAPARIN SODIUM
     Route: 065
  104. TINZAPARIN SODIUM [Suspect]
     Active Substance: TINZAPARIN SODIUM
  105. TACROLIMUS [Suspect]
     Active Substance: TACROLIMUS
     Indication: Product used for unknown indication
  106. TACROLIMUS [Suspect]
     Active Substance: TACROLIMUS
     Route: 065
  107. TACROLIMUS [Suspect]
     Active Substance: TACROLIMUS
     Route: 065
  108. TACROLIMUS [Suspect]
     Active Substance: TACROLIMUS
  109. FENTANYL [Suspect]
     Active Substance: FENTANYL
     Indication: Induction of anaesthesia
  110. FENTANYL [Suspect]
     Active Substance: FENTANYL
  111. FENTANYL [Suspect]
     Active Substance: FENTANYL
     Route: 037
  112. FENTANYL [Suspect]
     Active Substance: FENTANYL
     Route: 037
  113. FENTANYL [Suspect]
     Active Substance: FENTANYL
  114. FENTANYL [Suspect]
     Active Substance: FENTANYL
  115. FENTANYL [Suspect]
     Active Substance: FENTANYL
     Route: 037
  116. FENTANYL [Suspect]
     Active Substance: FENTANYL
     Route: 037
  117. FENTANYL [Suspect]
     Active Substance: FENTANYL
     Indication: Induction of anaesthesia
  118. FENTANYL [Suspect]
     Active Substance: FENTANYL
     Route: 037
  119. FENTANYL [Suspect]
     Active Substance: FENTANYL
     Route: 037
  120. FENTANYL [Suspect]
     Active Substance: FENTANYL
  121. LIDOCAINE [Suspect]
     Active Substance: LIDOCAINE
     Indication: Product used for unknown indication
  122. LIDOCAINE [Suspect]
     Active Substance: LIDOCAINE
     Route: 061
  123. LIDOCAINE [Suspect]
     Active Substance: LIDOCAINE
     Route: 061
  124. LIDOCAINE [Suspect]
     Active Substance: LIDOCAINE
  125. MORPHINE [Suspect]
     Active Substance: MORPHINE
     Indication: Product used for unknown indication
  126. MORPHINE [Suspect]
     Active Substance: MORPHINE
     Route: 065
  127. MORPHINE [Suspect]
     Active Substance: MORPHINE
     Route: 065
  128. MORPHINE [Suspect]
     Active Substance: MORPHINE
  129. MORPHINE SULFATE [Suspect]
     Active Substance: MORPHINE SULFATE
     Indication: Product used for unknown indication
  130. MORPHINE SULFATE [Suspect]
     Active Substance: MORPHINE SULFATE
     Route: 065
  131. MORPHINE SULFATE [Suspect]
     Active Substance: MORPHINE SULFATE
     Route: 065
  132. MORPHINE SULFATE [Suspect]
     Active Substance: MORPHINE SULFATE
  133. PHENYLEPHRINE [Suspect]
     Active Substance: PHENYLEPHRINE
     Indication: Product used for unknown indication
  134. PHENYLEPHRINE [Suspect]
     Active Substance: PHENYLEPHRINE
     Route: 065
  135. PHENYLEPHRINE [Suspect]
     Active Substance: PHENYLEPHRINE
     Route: 065
  136. PHENYLEPHRINE [Suspect]
     Active Substance: PHENYLEPHRINE
  137. CALCIUM CHLORIDE\POTASSIUM CHLORIDE\SODIUM LACTATE [Suspect]
     Active Substance: CALCIUM CHLORIDE\POTASSIUM CHLORIDE\SODIUM LACTATE
     Indication: Product used for unknown indication
  138. CALCIUM CHLORIDE\POTASSIUM CHLORIDE\SODIUM LACTATE [Suspect]
     Active Substance: CALCIUM CHLORIDE\POTASSIUM CHLORIDE\SODIUM LACTATE
     Route: 065
  139. CALCIUM CHLORIDE\POTASSIUM CHLORIDE\SODIUM LACTATE [Suspect]
     Active Substance: CALCIUM CHLORIDE\POTASSIUM CHLORIDE\SODIUM LACTATE
     Route: 065
  140. CALCIUM CHLORIDE\POTASSIUM CHLORIDE\SODIUM LACTATE [Suspect]
     Active Substance: CALCIUM CHLORIDE\POTASSIUM CHLORIDE\SODIUM LACTATE
  141. EPINEPHRINE [Concomitant]
     Active Substance: EPINEPHRINE
  142. EPINEPHRINE [Concomitant]
     Active Substance: EPINEPHRINE
     Route: 065
  143. EPINEPHRINE [Concomitant]
     Active Substance: EPINEPHRINE
     Route: 065
  144. EPINEPHRINE [Concomitant]
     Active Substance: EPINEPHRINE
  145. Lidocaine-norepinephrine [Concomitant]
  146. Lidocaine-norepinephrine [Concomitant]
     Route: 065
  147. Lidocaine-norepinephrine [Concomitant]
     Route: 065
  148. Lidocaine-norepinephrine [Concomitant]

REACTIONS (6)
  - Dyspnoea [Unknown]
  - Anxiety [Unknown]
  - Maternal exposure during pregnancy [Unknown]
  - Live birth [Unknown]
  - Premature delivery [Unknown]
  - Normal newborn [Unknown]
